FAERS Safety Report 7824471-3 (Version None)
Quarter: 2011Q4

REPORT INFORMATION
  Report Type: 
  Country: None (occurrence: None)
  Receive Date: 20111019
  Receipt Date: 20111011
  Transmission Date: 20120403
  Serious: Yes (Hospitalization)
  Sender: FDA-Public Use
  Company Number: TW-JNJFOC-20111005313

PATIENT
  Age: 67 Year
  Sex: Female
  Weight: 60 kg

DRUGS (3)
  1. VALTREX [Suspect]
     Indication: HERPES ZOSTER
     Dosage: ONCE A DAY
     Route: 065
     Dates: start: 20110207
  2. ULTRACET [Suspect]
     Indication: HERPES ZOSTER
     Dosage: 1 TABLET, THRICE IN A DAY
     Route: 048
     Dates: start: 20110207
  3. GENTAMICIN [Concomitant]
     Route: 065

REACTIONS (2)
  - ALTERED STATE OF CONSCIOUSNESS [None]
  - DIZZINESS [None]
